FAERS Safety Report 21311496 (Version 1)
Quarter: 2022Q3

REPORT INFORMATION
  Report Type: Spontaneous
  Country: US (occurrence: None)
  Receive Date: 20220908
  Receipt Date: 20220908
  Transmission Date: 20221026
  Serious: Yes (Hospitalization)
  Sender: FDA-Public Use
  Company Number: None

PATIENT
  Sex: Female

DRUGS (11)
  1. ENBREL [Suspect]
     Active Substance: ETANERCEPT
     Indication: Rheumatoid arthritis
     Route: 058
     Dates: start: 20220525
  2. ADDERALL XR CAP [Concomitant]
  3. BACLOFEN TAB [Concomitant]
  4. CYCLOBENZAPR TAB [Concomitant]
  5. FOLIC ACID TAB [Concomitant]
  6. MAXALT TAB [Concomitant]
  7. METHOTREXATE [Concomitant]
     Active Substance: METHOTREXATE
  8. MONTELUKAST SODIUM [Concomitant]
     Active Substance: MONTELUKAST SODIUM
  9. NORTRIPTYLIN CAP [Concomitant]
  10. PLAQUENIL [Concomitant]
     Active Substance: HYDROXYCHLOROQUINE SULFATE
  11. SPIRONOLAC TAB [Concomitant]

REACTIONS (1)
  - Intentional dose omission [None]
